FAERS Safety Report 5638362-X (Version None)
Quarter: 2008Q1

REPORT INFORMATION
  Report Type: 
  Country: None (occurrence: None)
  Receive Date: 20080226
  Receipt Date: 20080213
  Transmission Date: 20080703
  Serious: Yes (Hospitalization)
  Sender: FDA-Public Use
  Company Number: FR-AVENTIS-200810634FR

PATIENT
  Age: 24 Year
  Sex: Female

DRUGS (14)
  1. PROFENID [Suspect]
     Dates: end: 20080113
  2. LOVENOX [Suspect]
     Route: 058
     Dates: end: 20080114
  3. MYOLASTAN [Suspect]
     Dates: end: 20080111
  4. PERFALGAN [Suspect]
     Route: 042
     Dates: end: 20080113
  5. ZOPHREN                            /00955301/ [Suspect]
     Dates: end: 20080113
  6. ACUPAN [Suspect]
     Dates: end: 20080111
  7. DROLEPTAN [Suspect]
     Dates: end: 20080111
  8. PROTOXYDE D' AZOTE [Suspect]
     Dates: end: 20080111
  9. DIPRIVAN [Suspect]
     Dates: end: 20080111
  10. HYPNOVEL                           /00634103/ [Suspect]
     Dates: end: 20080111
  11. KETALAR [Suspect]
     Dates: end: 20080111
  12. SUFENTANYL [Suspect]
     Dates: end: 20080111
  13. NEXIUM [Suspect]
     Dates: end: 20080111
  14. MORPHINE [Suspect]
     Dates: end: 20080114

REACTIONS (1)
  - ACUTE GENERALISED EXANTHEMATOUS PUSTULOSIS [None]
